FAERS Safety Report 9194280 (Version 1)
Quarter: 2013Q1

REPORT INFORMATION
  Report Type: Spontaneous
  Country: FR (occurrence: FR)
  Receive Date: 20130327
  Receipt Date: 20130327
  Transmission Date: 20140127
  Serious: Yes (Hospitalization)
  Sender: FDA-Public Use
  Company Number: FR-PFIZER INC-2013092548

PATIENT
  Age: 61 Year
  Sex: Female

DRUGS (3)
  1. REVATIO [Suspect]
     Indication: SYSTEMIC SCLEROSIS
     Dosage: 20 MG, 2X/DAY
     Route: 048
     Dates: start: 201204, end: 201207
  2. LYRICA [Concomitant]
     Dosage: UNK
     Route: 048
  3. TRAMADOL BASE [Concomitant]
     Indication: ARTHRALGIA
     Dosage: UNK
     Route: 048

REACTIONS (3)
  - Eye haemorrhage [Unknown]
  - Ocular hyperaemia [Unknown]
  - Off label use [Unknown]
